FAERS Safety Report 9249031 (Version 1)
Quarter: 2013Q1

REPORT INFORMATION
  Report Type: Spontaneous
  Country: US (occurrence: None)
  Receive Date: 20130305
  Receipt Date: 20130305
  Transmission Date: 20140127
  Serious: Yes (Other)
  Sender: FDA-Public Use
  Company Number: 163-21880-12101196

PATIENT
  Age: 65 Year
  Sex: Male

DRUGS (7)
  1. REVLIMID [Suspect]
     Indication: PLASMA CELL MYELOMA
     Dosage: 25 MG, 21 IN 28 D, PO
     Route: 048
     Dates: start: 20120815
  2. CENTRUM(CENTRUM) (UNKNOWN) [Concomitant]
  3. PANTOPRAZOLE(PANTOPRAZOLE) (UNKNOWN) [Concomitant]
  4. XANAX(ALPRAZOLAM) (UNKNOWN) [Concomitant]
  5. LABETALOL(LABETALOL) (UNKNOWN) [Concomitant]
  6. ASA(ACETYLSALICYLIC ACID) (UNKNOWN) [Concomitant]
  7. PANCREASE(PANCRELIPASE) (UNKNOWN) [Concomitant]

REACTIONS (3)
  - Pruritus [None]
  - Fatigue [None]
  - Diarrhoea [None]
